FAERS Safety Report 8078621-7 (Version None)
Quarter: 2012Q1

REPORT INFORMATION
  Report Type: 
  Country: None (occurrence: None)
  Receive Date: 20120124
  Receipt Date: 20120109
  Transmission Date: 20120608
  Serious: Yes (Other)
  Sender: FDA-Public Use
  Company Number: EU-2011-10138

PATIENT
  Age: 67 Year
  Sex: Male

DRUGS (12)
  1. ASPIRIN [Concomitant]
  2. NOVAMINSULFON (NOVAMINSULFON) [Concomitant]
  3. PANTOPRAZOLE [Concomitant]
  4. PLETAL [Suspect]
     Dosage: 100 MG MILLIGRAM(S), UNKNOWN, ORAL
     Route: 048
  5. ZOPICLONE (ZOPICLONE) [Concomitant]
  6. FENTANYL-25 [Suspect]
     Dosage: 25 1/4G MICROGRAM(S), UNKNOWN, EPIDURAL
     Route: 008
  7. METOHEXAL (METOPROLOL SUCCINATE) [Concomitant]
  8. DIGOXIN [Concomitant]
  9. OXAZEPAM [Concomitant]
  10. PIRETANID (PIRETANIDE) [Concomitant]
  11. ENALAPRIL MALEATE [Concomitant]
  12. MOLSIDOMIN (MOLSIDOMINE) [Concomitant]

REACTIONS (2)
  - DRUG EFFECT DECREASED [None]
  - PROSTATOMEGALY [None]
